FAERS Safety Report 22105052 (Version 1)
Quarter: 2023Q1

REPORT INFORMATION
  Report Type: Report from Study
  Country: US (occurrence: US)
  Receive Date: 20230316
  Receipt Date: 20230316
  Transmission Date: 20230417
  Serious: Yes (Other)
  Sender: FDA-Public Use
  Company Number: US-ABBVIE-4341816

PATIENT
  Sex: Female

DRUGS (1)
  1. HUMIRA [Suspect]
     Active Substance: ADALIMUMAB
     Indication: Rheumatoid arthritis
     Route: 058

REACTIONS (7)
  - Hip arthroplasty [Unknown]
  - Muscle rupture [Unknown]
  - Procedural pain [Not Recovered/Not Resolved]
  - Diabetes mellitus [Unknown]
  - Pain in extremity [Not Recovered/Not Resolved]
  - Knee arthroplasty [Unknown]
  - Dysstasia [Unknown]
